FAERS Safety Report 5324541-8 (Version None)
Quarter: 2007Q2

REPORT INFORMATION
  Report Type: 
  Country: None (occurrence: None)
  Receive Date: 20070508
  Receipt Date: 20070423
  Transmission Date: 20071010
  Serious: Yes (Other)
  Sender: FDA-Public Use
  Company Number: 2007EU000346

PATIENT
  Age: 32 Year
  Sex: Female

DRUGS (2)
  1. PROGRAF [Suspect]
     Indication: DERMATITIS ATOPIC
     Dosage: 0.1% , TOPICAL
     Route: 061
     Dates: start: 20021101, end: 20061110
  2. AZATHIOPRINE [Concomitant]

REACTIONS (7)
  - ECZEMA HERPETICUM [None]
  - FATIGUE [None]
  - HERPES ZOSTER [None]
  - LYMPHADENOPATHY [None]
  - MALAISE [None]
  - POST VIRAL FATIGUE SYNDROME [None]
  - WEIGHT DECREASED [None]
